FAERS Safety Report 6166587-6 (Version None)
Quarter: 2009Q2

REPORT INFORMATION
  Report Type: 
  Country: None (occurrence: None)
  Receive Date: 20090422
  Receipt Date: 20090414
  Transmission Date: 20091009
  Serious: Yes (Hospitalization, Other)
  Sender: FDA-Public Use
  Company Number: 2009EN000047

PATIENT
  Age: 13 Year
  Sex: Female
  Weight: 80 kg

DRUGS (6)
  1. ONCASPAR [Suspect]
     Indication: ACUTE LYMPHOCYTIC LEUKAEMIA
     Dosage: 4750 IU; XI, IV
     Route: 042
     Dates: start: 20090202, end: 20090202
  2. PREDNISONE [Suspect]
     Indication: ACUTE LYMPHOCYTIC LEUKAEMIA
     Dosage: 3360 MG, BID; PO
     Route: 048
     Dates: start: 20090130
  3. DAUNORUBICIN HCL [Suspect]
     Indication: ACUTE LYMPHOCYTIC LEUKAEMIA
     Dosage: 160 MG, QW; IV
     Route: 042
     Dates: start: 20090130, end: 20090220
  4. METHOTREXATE [Suspect]
     Indication: ACUTE LYMPHOCYTIC LEUKAEMIA
     Dosage: 30 MG; INTH
     Route: 037
     Dates: start: 20090206, end: 20090227
  5. CYTARABINE [Concomitant]
  6. VINCRISTINE [Concomitant]

REACTIONS (9)
  - ABDOMINAL PAIN UPPER [None]
  - ASTHENIA [None]
  - HYPERBILIRUBINAEMIA [None]
  - HYPERCHOLESTEROLAEMIA [None]
  - HYPERGLYCAEMIA [None]
  - HYPERTRIGLYCERIDAEMIA [None]
  - HYPOGLYCAEMIA [None]
  - MUCOSAL INFLAMMATION [None]
  - STAPHYLOCOCCAL SEPSIS [None]
